FAERS Safety Report 5227722-7 (Version None)
Quarter: 2007Q1

REPORT INFORMATION
  Report Type: 
  Country: None (occurrence: None)
  Receive Date: 20070202
  Receipt Date: 20070125
  Transmission Date: 20070707
  Serious: Yes (Hospitalization, Other)
  Sender: FDA-Public Use
  Company Number: US-PFIZER INC-2007007279

PATIENT
  Age: 19 Year
  Sex: Male
  Weight: 113.4 kg

DRUGS (1)
  1. XANAX [Suspect]

REACTIONS (3)
  - DRUG ABUSER [None]
  - DRUG SCREEN POSITIVE [None]
  - OVERDOSE [None]
